FAERS Safety Report 6070038-X (Version None)
Quarter: 2009Q1

REPORT INFORMATION
  Report Type: 
  Country: None (occurrence: None)
  Receive Date: 20090209
  Receipt Date: 20090129
  Transmission Date: 20090719
  Serious: Yes (Other)
  Sender: FDA-Public Use
  Company Number: PHHY2009AR03576

PATIENT
  Sex: Female

DRUGS (1)
  1. ZADITEN [Suspect]
     Indication: HYPERSENSITIVITY
     Dosage: UNK

REACTIONS (2)
  - CONJUNCTIVAL HAEMORRHAGE [None]
  - CONJUNCTIVITIS [None]
